FAERS Safety Report 4836489-3 (Version None)
Quarter: 2005Q4

REPORT INFORMATION
  Report Type: 
  Country: None (occurrence: None)
  Receive Date: 20051118
  Receipt Date: 20051107
  Transmission Date: 20060501
  Serious: Yes (Hospitalization)
  Sender: FDA-Public Use
  Company Number: 2005151713

PATIENT
  Age: 80 Year
  Sex: Male

DRUGS (6)
  1. CELEBREX [Suspect]
     Indication: ARTHRALGIA
     Dosage: 400 MG (200 MG, AS  NECESSARY), ORAL
     Route: 048
     Dates: start: 20040701, end: 20050917
  2. ASPIRIN [Concomitant]
  3. CORDARONE [Concomitant]
  4. ENALAPRIL MALEATE [Concomitant]
  5. SELIPRAN (PRAVASTATIN SODIUM) [Concomitant]
  6. AMARYL [Concomitant]

REACTIONS (3)
  - ENDOCARDITIS [None]
  - LEUKOCYTOCLASTIC VASCULITIS [None]
  - OSLER'S NODES [None]
